FAERS Safety Report 9897952 (Version 1)
Quarter: 2014Q1

REPORT INFORMATION
  Report Type: Spontaneous
  Country: US (occurrence: US)
  Receive Date: 20140214
  Receipt Date: 20140214
  Transmission Date: 20141002
  Serious: No
  Sender: FDA-Public Use
  Company Number: US-PFIZER INC-2014042126

PATIENT
  Age: 60 Year
  Sex: Female
  Weight: 78.01 kg

DRUGS (6)
  1. LYRICA [Suspect]
     Indication: FIBROMYALGIA
     Dosage: 200 MG, 3X/DAY
  2. LYRICA [Suspect]
     Indication: OSTEOARTHRITIS
     Dosage: 50 MG, 3X/DAY
     Dates: start: 201401
  3. LYRICA [Suspect]
     Indication: PSORIATIC ARTHROPATHY
  4. LYRICA [Suspect]
     Indication: RHEUMATOID ARTHRITIS
  5. LASIX [Concomitant]
     Indication: HYPERTENSION
     Dosage: 20 MG, 2X/DAY
  6. MAXZIDE [Concomitant]
     Indication: HYPERTENSION
     Dosage: TRIAMTERENE 37.5MG/ HYDROCHLOROTHIAZIDE 25MG, 4X/DAY

REACTIONS (2)
  - Off label use [Unknown]
  - Drug intolerance [Recovered/Resolved]
